FAERS Safety Report 7707459-2 (Version None)
Quarter: 2011Q3

REPORT INFORMATION
  Report Type: 
  Country: None (occurrence: None)
  Receive Date: 20110824
  Receipt Date: 20110820
  Transmission Date: 20111222
  Serious: Yes (Hospitalization, Other)
  Sender: FDA-Public Use
  Company Number: CA-ABBOTT-11P-028-0709944-00

PATIENT
  Sex: Female
  Weight: 63.56 kg

DRUGS (8)
  1. PREDNISONE [Concomitant]
     Indication: ARTHRITIS
     Route: 048
  2. VITAMIN D [Concomitant]
     Indication: BONE DISORDER
     Route: 048
  3. ORTHOVISC [Concomitant]
     Indication: ARTHRALGIA
     Dosage: WEEKLY INJECTION IN KNEE
     Dates: start: 20110817
  4. HUMIRA [Suspect]
     Indication: RHEUMATOID ARTHRITIS
     Route: 058
     Dates: start: 20070215
  5. COUMADIN [Concomitant]
     Indication: ANTICOAGULANT THERAPY
  6. ATENOLOL [Concomitant]
     Indication: CARDIAC DISORDER
     Route: 048
     Dates: start: 20080101
  7. CALCIUM CARBONATE [Concomitant]
     Indication: BONE DISORDER
     Route: 048
  8. LIPITOR [Concomitant]
     Indication: BLOOD CHOLESTEROL INCREASED
     Route: 048
     Dates: start: 20080101

REACTIONS (3)
  - PULMONARY EMBOLISM [None]
  - CHEST DISCOMFORT [None]
  - PULMONARY FIBROSIS [None]
